FAERS Safety Report 8799467 (Version 2)
Quarter: 2013Q4

REPORT INFORMATION
  Report Type: Spontaneous
  Country: GB (occurrence: GB)
  Receive Date: 20120919
  Receipt Date: 20131011
  Transmission Date: 20140711
  Serious: Yes (Death, Congenital Anomaly, Other)
  Sender: FDA-Public Use
  Company Number: GB-MYLANLABS-2012S1018511

PATIENT
  Sex: 0

DRUGS (4)
  1. AZATHIOPRINE [Suspect]
     Route: 064
  2. FOLIC ACID [Concomitant]
     Route: 064
  3. LANSOPRAZOLE [Concomitant]
     Route: 064
  4. PREDNISOLONE [Concomitant]
     Route: 064

REACTIONS (8)
  - Cleft palate [Unknown]
  - Talipes [Unknown]
  - Congenital anomaly [Unknown]
  - Exposure during pregnancy [Unknown]
  - Foetal exposure during pregnancy [Unknown]
  - Developmental delay [Unknown]
  - Epilepsy [Unknown]
  - Death neonatal [Fatal]
